FAERS Safety Report 25108528 (Version 2)
Quarter: 2025Q1

REPORT INFORMATION
  Report Type: Spontaneous
  Country: BE (occurrence: BE)
  Receive Date: 20250322
  Receipt Date: 20250331
  Transmission Date: 20250408
  Serious: Yes (Hospitalization)
  Sender: AUROBINDO
  Company Number: BE-FAMHP-DHH-N2025-124032

PATIENT
  Age: 18 Year
  Sex: Male

DRUGS (3)
  1. ACETAMINOPHEN [Suspect]
     Active Substance: ACETAMINOPHEN
     Indication: Product used for unknown indication
     Route: 048
  2. ACETAMINOPHEN [Suspect]
     Active Substance: ACETAMINOPHEN
     Route: 048
  3. DICLOFENAC [Suspect]
     Active Substance: DICLOFENAC
     Indication: Product used for unknown indication
     Route: 048

REACTIONS (3)
  - Somnolence [Not Recovered/Not Resolved]
  - Intentional overdose [Not Recovered/Not Resolved]
  - Product use issue [Not Recovered/Not Resolved]
